FAERS Safety Report 19846906 (Version 1)
Quarter: 2021Q3

REPORT INFORMATION
  Report Type: Spontaneous
  Country: US (occurrence: US)
  Receive Date: 20210917
  Receipt Date: 20210917
  Transmission Date: 20211014
  Serious: No
  Sender: FDA-Public Use
  Company Number: US-BAYER-2021-204347

PATIENT
  Age: 58 Year
  Sex: Female
  Weight: 68.03 kg

DRUGS (1)
  1. ALEVE [Suspect]
     Active Substance: NAPROXEN SODIUM
     Dosage: UNK
     Dates: start: 2019, end: 2019

REACTIONS (1)
  - Dry mouth [Recovered/Resolved]

NARRATIVE: CASE EVENT DATE: 2019
